FAERS Safety Report 14940291 (Version 3)
Quarter: 2018Q3

REPORT INFORMATION
  Report Type: Report from Study
  Country: US (occurrence: US)
  Receive Date: 20180525
  Receipt Date: 20180926
  Transmission Date: 20181010
  Serious: Yes (Hospitalization, Other)
  Sender: FDA-Public Use
  Company Number: US-SA-2017SA045148

PATIENT
  Age: 34 Year
  Sex: Male
  Weight: 124 kg

DRUGS (26)
  1. SOLU?MEDROL [Concomitant]
     Active Substance: METHYLPREDNISOLONE SODIUM SUCCINATE
     Indication: PROPHYLAXIS
     Dosage: 1000 MG,QD
     Route: 042
     Dates: start: 20170227, end: 20170301
  2. ZANTAC [Concomitant]
     Active Substance: RANITIDINE HYDROCHLORIDE
     Indication: PROPHYLAXIS
     Dosage: 150 MG,QD
     Route: 048
     Dates: start: 20170224
  3. VYVANSE [Concomitant]
     Active Substance: LISDEXAMFETAMINE DIMESYLATE
     Indication: ATTENTION DEFICIT/HYPERACTIVITY DISORDER
     Dosage: 30 MG,QD
     Route: 048
     Dates: start: 201507, end: 201703
  4. ZYRTEC [Concomitant]
     Active Substance: CETIRIZINE HYDROCHLORIDE
     Indication: PROPHYLAXIS
     Dosage: 10 MG,QD
     Route: 048
     Dates: start: 20170224
  5. VIMPAT [Concomitant]
     Active Substance: LACOSAMIDE
     Indication: SEIZURE
     Dosage: 150 MG,UNK
     Route: 048
     Dates: start: 20170828
  6. ZOFRAN [ONDANSETRON] [Concomitant]
     Indication: NAUSEA
     Dosage: 1 DF,BID
     Route: 048
  7. ZOFRAN [ONDANSETRON] [Concomitant]
     Indication: VOMITING
  8. ROXICODONE [Concomitant]
     Active Substance: OXYCODONE HYDROCHLORIDE
     Indication: PAIN
     Dosage: 1 DF,Q6H
     Route: 048
  9. XALATAN [Concomitant]
     Active Substance: LATANOPROST
     Indication: OPEN ANGLE GLAUCOMA
     Dosage: 1 DF,QD
     Route: 047
     Dates: start: 20141211
  10. CHLORHEXIDINE GLUCONATE. [Concomitant]
     Active Substance: CHLORHEXIDINE GLUCONATE
     Dosage: UNK UNK,QD
     Route: 061
  11. ATIVAN [Concomitant]
     Active Substance: LORAZEPAM
     Indication: SEIZURE
     Dosage: 1 DF,PRN
     Route: 048
  12. VITAMIN D3 [Concomitant]
     Active Substance: CHOLECALCIFEROL
     Indication: VITAMIN D DEFICIENCY
     Dosage: 50000 IU,QD
     Route: 048
     Dates: start: 20140729, end: 201704
  13. BENADRYL [Concomitant]
     Active Substance: DIPHENHYDRAMINE HYDROCHLORIDE
     Indication: PROPHYLAXIS
     Dosage: 50 MG,QD
     Route: 042
     Dates: start: 20170227, end: 20170301
  14. VIMPAT [Concomitant]
     Active Substance: LACOSAMIDE
     Dosage: 100 MG,UNK
     Route: 048
     Dates: start: 20170626
  15. VIMPAT [Concomitant]
     Active Substance: LACOSAMIDE
     Dosage: 200 MG,QD
     Route: 048
  16. BRIVIACT [Concomitant]
     Active Substance: BRIVARACETAM
     Dosage: 50 MG,BID
     Route: 048
  17. CLONAZEPAM. [Concomitant]
     Active Substance: CLONAZEPAM
     Indication: SEIZURE
     Dosage: 1 DF, QD
     Route: 048
     Dates: start: 20180125, end: 20180126
  18. LAMICTAL [Concomitant]
     Active Substance: LAMOTRIGINE
     Indication: SEIZURE
     Dosage: 250 MG,QD
     Route: 048
     Dates: start: 20141209, end: 20170828
  19. LAMICTAL [Concomitant]
     Active Substance: LAMOTRIGINE
     Dosage: 300 MG,UNK
     Route: 048
     Dates: start: 20170828
  20. VYVANSE [Concomitant]
     Active Substance: LISDEXAMFETAMINE DIMESYLATE
     Dosage: 20 MG,UNK
     Route: 048
     Dates: start: 20170805
  21. PARACETAMOL [Concomitant]
     Active Substance: ACETAMINOPHEN
     Indication: PROPHYLAXIS
     Dosage: 1000 MG,QD
     Route: 048
     Dates: start: 20170227, end: 20170301
  22. VIMPAT [Concomitant]
     Active Substance: LACOSAMIDE
     Dosage: 200 MG,BID
     Route: 048
  23. MUPIROCIN. [Concomitant]
     Active Substance: MUPIROCIN
     Dosage: UNK UNK,QD
     Route: 061
  24. ALEMTUZUMAB [Suspect]
     Active Substance: ALEMTUZUMAB
     Indication: MULTIPLE SCLEROSIS RELAPSE
     Dosage: 12 MG,QD
     Route: 041
     Dates: start: 20170227, end: 20170301
  25. ALEMTUZUMAB [Suspect]
     Active Substance: ALEMTUZUMAB
     Dosage: 12 MG,QD
     Route: 041
     Dates: start: 20170306, end: 20170307
  26. VALTREX [Concomitant]
     Active Substance: VALACYCLOVIR HYDROCHLORIDE
     Indication: PROPHYLAXIS
     Dosage: 500 MG,QD
     Route: 048
     Dates: start: 20170227

REACTIONS (4)
  - Anxiety [Recovered/Resolved]
  - Nausea [Recovered/Resolved]
  - Oligodendroglioma [Not Recovered/Not Resolved]
  - Tachycardia [Recovered/Resolved]

NARRATIVE: CASE EVENT DATE: 20170227
